FAERS Safety Report 10052370 (Version 3)
Quarter: 2014Q2

REPORT INFORMATION
  Report Type: Report from Study
  Country: US (occurrence: US)
  Receive Date: 20140402
  Receipt Date: 20140508
  Transmission Date: 20141212
  Serious: Yes (Life-Threatening, Hospitalization)
  Sender: FDA-Public Use
  Company Number: US-JNJFOC-20140316153

PATIENT
  Age: 60 Year
  Sex: Female
  Weight: 104.78 kg

DRUGS (13)
  1. REMICADE [Suspect]
     Indication: RHEUMATOID ARTHRITIS
     Route: 042
     Dates: start: 201310
  2. ALBUTEROL [Concomitant]
     Indication: ASTHMA
     Route: 055
     Dates: start: 2010
  3. CITALOPRAM [Concomitant]
     Indication: ANXIETY
     Route: 048
  4. DULERA [Concomitant]
     Indication: ASTHMA
     Route: 055
     Dates: start: 2010
  5. FOLIC ACID [Concomitant]
     Indication: RHEUMATOID ARTHRITIS
     Route: 048
     Dates: start: 2011
  6. PLAQUENIL [Concomitant]
     Indication: RHEUMATOID ARTHRITIS
     Route: 048
     Dates: start: 2011
  7. LISINOPRIL [Concomitant]
     Indication: BLOOD PRESSURE
     Route: 048
  8. ALDACTONE [Concomitant]
     Indication: BLOOD PRESSURE
     Route: 048
     Dates: start: 1997
  9. VITAMIN D [Concomitant]
     Route: 048
  10. LIDODERM PATCH [Concomitant]
     Indication: BACK PAIN
     Dosage: TD
     Route: 065
  11. METHOTREXATE [Concomitant]
     Indication: RHEUMATOID ARTHRITIS
     Dosage: TD
     Route: 065
  12. DOXYCYCLINE [Concomitant]
     Route: 065
  13. MUCINEX [Concomitant]
     Route: 065

REACTIONS (1)
  - Pulmonary embolism [Recovering/Resolving]
